FAERS Safety Report 17358614 (Version 2)
Quarter: 2020Q1

REPORT INFORMATION
  Report Type: Report from Study
  Country: US (occurrence: US)
  Receive Date: 20200201
  Receipt Date: 20200210
  Transmission Date: 20200409
  Serious: Yes (Hospitalization, Other)
  Sender: FDA-Public Use
  Company Number: US-ACCORD-170964

PATIENT
  Age: 4 Year
  Sex: Female

DRUGS (1)
  1. METHOTREXATE. [Suspect]
     Active Substance: METHOTREXATE
     Indication: ACUTE LYMPHOCYTIC LEUKAEMIA
     Dosage: IV MTX 200 MG/M2
     Route: 037

REACTIONS (6)
  - Postictal state [Recovered/Resolved]
  - Tardive dyskinesia [Recovered/Resolved]
  - Unresponsive to stimuli [Recovered/Resolved]
  - Epilepsy [Recovered/Resolved]
  - Facial paralysis [Recovered/Resolved]
  - Gaze palsy [Recovered/Resolved]
